FAERS Safety Report 8145351-2 (Version None)
Quarter: 2012Q1

REPORT INFORMATION
  Report Type: 
  Country: None (occurrence: None)
  Receive Date: 20120217
  Receipt Date: 20120215
  Transmission Date: 20120608
  Serious: Yes (Death)
  Sender: FDA-Public Use
  Company Number: CN-SANOFI-AVENTIS-2012SA009913

PATIENT
  Age: 71 Year
  Sex: Male
  Weight: 70 kg

DRUGS (38)
  1. PREDNISONE [Concomitant]
     Route: 065
     Dates: start: 20110722, end: 20110808
  2. DEXAMETHASONE [Concomitant]
     Route: 065
     Dates: start: 20110719, end: 20110721
  3. DEXAMETHASONE [Concomitant]
     Route: 065
     Dates: start: 20110830, end: 20110901
  4. DEXAMETHASONE [Concomitant]
     Route: 065
     Dates: start: 20110920, end: 20110922
  5. DEXAMETHASONE [Concomitant]
     Route: 065
     Dates: start: 20111101, end: 20111103
  6. DEXAMETHASONE [Concomitant]
     Route: 065
     Dates: start: 20111219, end: 20111220
  7. DEXAMETHASONE [Concomitant]
     Route: 065
     Dates: start: 20120109, end: 20120111
  8. FAMOTIDINE [Concomitant]
     Route: 042
     Dates: start: 20120131, end: 20120131
  9. DEXAMETHASONE [Concomitant]
     Route: 065
     Dates: start: 20120130, end: 20120201
  10. CISPLATIN [Suspect]
     Route: 042
     Dates: start: 20111013, end: 20111013
  11. PREDNISONE [Concomitant]
     Route: 065
     Dates: start: 20120202
  12. PREDNISONE [Concomitant]
     Route: 065
     Dates: start: 20110902, end: 20110919
  13. DEXAMETHASONE [Concomitant]
     Route: 065
     Dates: start: 20111011, end: 20111013
  14. ONDANSETRON [Concomitant]
     Route: 042
     Dates: start: 20120201, end: 20120201
  15. POTASSIUM CHLORIDE [Concomitant]
     Route: 065
     Dates: start: 20120131, end: 20120131
  16. DIPHENHYDRAMINE HCL [Concomitant]
     Route: 030
     Dates: start: 20120131, end: 20120131
  17. ZOLEDRONIC ACID [Concomitant]
     Route: 065
     Dates: start: 20111219, end: 20120101
  18. PREDNISONE [Concomitant]
     Route: 065
     Dates: start: 20111014, end: 20111031
  19. DEXAMETHASONE [Concomitant]
     Route: 065
     Dates: start: 20111122, end: 20111124
  20. DIAZEPAM [Concomitant]
     Route: 048
     Dates: start: 20120131, end: 20120131
  21. DIAZEPAM [Concomitant]
     Route: 048
     Dates: start: 20120202, end: 20120202
  22. ALL OTHER THERAPEUTIC PRODUCTS [Concomitant]
     Route: 048
     Dates: start: 20120202, end: 20120202
  23. PREDNISONE [Concomitant]
     Route: 065
     Dates: start: 20110923, end: 20111010
  24. MECOBALAMIN [Concomitant]
     Route: 048
     Dates: start: 20120201, end: 20120201
  25. ASCORBIC ACID [Concomitant]
     Route: 048
     Dates: start: 20120201, end: 20120201
  26. DOCETAXEL [Suspect]
     Route: 042
     Dates: start: 20120130, end: 20120131
  27. CISPLATIN [Suspect]
     Route: 042
     Dates: start: 20120131, end: 20120131
  28. PREDNISONE [Concomitant]
     Route: 065
     Dates: start: 20111221, end: 20120108
  29. DEXAMETHASONE [Concomitant]
     Route: 065
     Dates: start: 20110809, end: 20110811
  30. MULTI-VITAMINS [Concomitant]
     Route: 048
     Dates: start: 20120201, end: 20120201
  31. FAMOTIDINE [Concomitant]
     Route: 042
     Dates: start: 20120201, end: 20120201
  32. PREDNISONE [Concomitant]
     Route: 065
     Dates: start: 20110812, end: 20110829
  33. PREDNISONE [Concomitant]
     Route: 065
     Dates: start: 20111104, end: 20111121
  34. PREDNISONE [Concomitant]
     Route: 065
     Dates: start: 20111125, end: 20111217
  35. DOCETAXEL [Suspect]
     Route: 042
     Dates: start: 20110720, end: 20110720
  36. PREDNISONE [Concomitant]
     Route: 065
     Dates: start: 20120112, end: 20120129
  37. DEXAMETHASONE [Concomitant]
     Route: 065
     Dates: start: 20111218, end: 20111219
  38. ONDANSETRON [Concomitant]
     Route: 042
     Dates: start: 20120131, end: 20120131

REACTIONS (4)
  - ERYTHEMA [None]
  - GENERAL PHYSICAL HEALTH DETERIORATION [None]
  - CARDIAC FAILURE [None]
  - PYREXIA [None]
